FAERS Safety Report 4408366-3 (Version None)
Quarter: 2004Q3

REPORT INFORMATION
  Report Type: 
  Country: None (occurrence: None)
  Receive Date: 20040722
  Receipt Date: 20040715
  Transmission Date: 20050211
  Serious: No
  Sender: FDA-Public Use
  Company Number: 2004UW12707

PATIENT
  Age: 6 Year
  Sex: Male

DRUGS (3)
  1. PULMICORT [Suspect]
  2. PRELONE [Suspect]
     Dosage: PERIODIC TREATMENTS
  3. VANCENASE [Concomitant]

REACTIONS (2)
  - GROWTH HORMONE DEFICIENCY [None]
  - GROWTH RETARDATION [None]
